FAERS Safety Report 4843534-8 (Version None)
Quarter: 2005Q4

REPORT INFORMATION
  Report Type: 
  Country: None (occurrence: None)
  Receive Date: 20051125
  Receipt Date: 20051116
  Transmission Date: 20060501
  Serious: Yes (Hospitalization)
  Sender: FDA-Public Use
  Company Number: HQWYE645118NOV05

PATIENT
  Age: 71 Year
  Sex: Male
  Weight: 70.37 kg

DRUGS (11)
  1. MYLOTARG [Suspect]
     Indication: ACUTE MYELOID LEUKAEMIA
     Dosage: 9 MG/M^2 1X PER 1 DAY, INTRAVENOUS
     Route: 042
     Dates: start: 20051108, end: 20051108
  2. THEOPHYLLINE [Concomitant]
  3. IMDUR [Concomitant]
  4. ALLOPURINOL [Concomitant]
  5. CARAFATE [Concomitant]
  6. CEFEPIME (CEFEPIME) [Concomitant]
  7. FLAGYL [Concomitant]
  8. VANCOMYCIN [Concomitant]
  9. IMMUNE GLOBULIN INTRAVENOUS (HUMAN) [Concomitant]
  10. FELODIPINE [Concomitant]
  11. VORICONAZOLE (VORICONAZOLE) [Concomitant]

REACTIONS (12)
  - BONE MARROW FAILURE [None]
  - CONDITION AGGRAVATED [None]
  - EPISTAXIS [None]
  - GASTROINTESTINAL HAEMORRHAGE [None]
  - HAEMATOCRIT DECREASED [None]
  - HAEMOGLOBIN DECREASED [None]
  - NEUTROPHIL COUNT DECREASED [None]
  - ORTHOSTATIC HYPOTENSION [None]
  - PLATELET COUNT DECREASED [None]
  - PROTHROMBIN TIME PROLONGED [None]
  - TACHYCARDIA [None]
  - WHITE BLOOD CELL COUNT DECREASED [None]
